FAERS Safety Report 25663869 (Version 1)
Quarter: 2025Q3

REPORT INFORMATION
  Report Type: Spontaneous
  Country: CN (occurrence: CN)
  Receive Date: 20250811
  Receipt Date: 20250811
  Transmission Date: 20251021
  Serious: Yes (Hospitalization, Other)
  Sender: AAVIS PHARMACEUTICALS
  Company Number: CN-AVS-000196

PATIENT
  Sex: Male

DRUGS (2)
  1. TERBINAFINE [Suspect]
     Active Substance: TERBINAFINE
     Indication: Scedosporium infection
     Dosage: ON DAY +172
     Route: 048
     Dates: start: 2020
  2. VORICONAZOLE [Suspect]
     Active Substance: VORICONAZOLE
     Indication: Scedosporium infection
     Dosage: ON DAY +172
     Route: 065
     Dates: start: 2020

REACTIONS (3)
  - Disease progression [Recovering/Resolving]
  - Product use in unapproved indication [Unknown]
  - Scedosporium infection [Recovering/Resolving]

NARRATIVE: CASE EVENT DATE: 20200101
